FAERS Safety Report 15664179 (Version 2)
Quarter: 2019Q4

REPORT INFORMATION
  Report Type: Spontaneous
  Country: US (occurrence: US)
  Receive Date: 20181128
  Receipt Date: 20191127
  Transmission Date: 20200122
  Serious: No
  Sender: FDA-Public Use
  Company Number: US-AUROBINDO-AUR-APL-2018-044695

PATIENT

DRUGS (1)
  1. LOSARTAN TABLETS [Suspect]
     Active Substance: LOSARTAN
     Indication: PRODUCT USED FOR UNKNOWN INDICATION
     Dosage: 12.5 MILLIGRAM
     Route: 065

REACTIONS (4)
  - Cardiac disorder [Unknown]
  - Asthenia [Unknown]
  - Weight increased [Unknown]
  - Cough [Not Recovered/Not Resolved]
